FAERS Safety Report 25528282 (Version 1)
Quarter: 2025Q3

REPORT INFORMATION
  Report Type: Spontaneous
  Country: US (occurrence: US)
  Receive Date: 20250708
  Receipt Date: 20250708
  Transmission Date: 20251021
  Serious: Yes (Other)
  Sender: AMGEN
  Company Number: US-AMGEN-USASP2025128915

PATIENT

DRUGS (3)
  1. AVACOPAN [Suspect]
     Active Substance: AVACOPAN
     Indication: Granulomatosis with polyangiitis
     Route: 065
  2. RITUXIMAB [Suspect]
     Active Substance: RITUXIMAB
     Indication: Granulomatosis with polyangiitis
     Route: 065
  3. PREDNISONE [Suspect]
     Active Substance: PREDNISONE
     Indication: Granulomatosis with polyangiitis
     Route: 065

REACTIONS (10)
  - Nephritic syndrome [Unknown]
  - Tuberculosis [Unknown]
  - Pneumocystis jirovecii pneumonia [Unknown]
  - Adrenal insufficiency [Unknown]
  - Diabetes mellitus [Unknown]
  - Hypertransaminasaemia [Unknown]
  - Herpes zoster [Unknown]
  - Herpes simplex [Unknown]
  - Ill-defined disorder [Unknown]
  - Cardiac disorder [Unknown]
